FAERS Safety Report 6160471-X (Version None)
Quarter: 2009Q2

REPORT INFORMATION
  Report Type: 
  Country: None (occurrence: None)
  Receive Date: 20090420
  Receipt Date: 20090415
  Transmission Date: 20091009
  Serious: Yes (Life-Threatening, Other)
  Sender: FDA-Public Use
  Company Number: CN-ASTRAZENECA-2009AP02627

PATIENT
  Age: 83 Year
  Sex: Male

DRUGS (5)
  1. SEROQUEL [Suspect]
     Indication: MENTAL DISORDER
     Route: 048
     Dates: start: 20060713, end: 20060823
  2. CHLORPROTHIXENE [Concomitant]
     Indication: MENTAL DISORDER
     Route: 048
     Dates: start: 20060605
  3. ANIRACETAM [Concomitant]
     Indication: MENTAL DISORDER
     Route: 048
     Dates: start: 20060612
  4. DONEPEZIL HYDROCHLORIDE [Concomitant]
     Indication: MENTAL DISORDER
     Route: 048
     Dates: start: 20060627
  5. VALPROATE SODIUM [Concomitant]
     Indication: MENTAL DISORDER
     Route: 048
     Dates: start: 20060704

REACTIONS (3)
  - CARDIAC ARREST [None]
  - ELECTROCARDIOGRAM QT PROLONGED [None]
  - RESPIRATORY ARREST [None]
